FAERS Safety Report 6689339-7 (Version None)
Quarter: 2010Q2

REPORT INFORMATION
  Report Type: 
  Country: None (occurrence: None)
  Receive Date: 20100419
  Receipt Date: 20100419
  Transmission Date: 20101027
  Serious: No
  Sender: FDA-Public Use
  Company Number: None

PATIENT
  Age: 37 Year
  Sex: Female

DRUGS (1)
  1. PPD SKIN TEST SANOFI PASTEUR [Suspect]
     Dosage: SUBDERMAL/LEFT FOREARM
     Route: 059

REACTIONS (3)
  - MALAISE [None]
  - PRURITUS [None]
  - URTICARIA [None]
